FAERS Safety Report 9969130 (Version 3)
Quarter: 2014Q2

REPORT INFORMATION
  Report Type: Report from Study
  Country: GB (occurrence: GB)
  Receive Date: 20140306
  Receipt Date: 20140418
  Transmission Date: 20141212
  Serious: Yes (Hospitalization)
  Sender: FDA-Public Use
  Company Number: GB-ROCHE-1359224

PATIENT
  Age: 89 Year
  Sex: Male

DRUGS (9)
  1. RANIBIZUMAB [Suspect]
     Indication: PRODUCT USED FOR UNKNOWN INDICATION
     Dosage: DATE OF LAST DOSE PRIOR TO SAE: 31/MAY/2011
     Route: 050
     Dates: start: 20110527
  2. RANIBIZUMAB [Suspect]
     Route: 050
     Dates: start: 20130531
  3. AMLODIPINE [Concomitant]
     Route: 065
     Dates: start: 2010
  4. ESOMEPRAZOLE [Concomitant]
     Route: 065
     Dates: start: 2010
  5. ALENDRONATE [Concomitant]
     Route: 065
     Dates: start: 2012, end: 20130812
  6. ADCAL-D3 [Concomitant]
     Route: 065
     Dates: start: 2012
  7. LACTULOSE [Concomitant]
     Route: 065
     Dates: start: 2012
  8. SENNA [Concomitant]
     Route: 065
     Dates: start: 2012
  9. FERROUS FUMARATE [Concomitant]
     Route: 065
     Dates: start: 2012

REACTIONS (2)
  - Lower respiratory tract infection [Recovered/Resolved]
  - Diarrhoea [Recovered/Resolved]
